FAERS Safety Report 14536320 (Version 2)
Quarter: 2018Q1

REPORT INFORMATION
  Report Type: Spontaneous
  Country: RO (occurrence: RO)
  Receive Date: 20180215
  Receipt Date: 20180221
  Transmission Date: 20180509
  Serious: Yes (Death, Other)
  Sender: FDA-Public Use
  Company Number: RO-ASTRAZENECA-2018SE18188

PATIENT
  Age: 65 Year
  Sex: Male

DRUGS (7)
  1. BRILIQUE [Suspect]
     Active Substance: TICAGRELOR
     Indication: STENT PLACEMENT
     Route: 048
     Dates: start: 201701
  2. BRILIQUE [Suspect]
     Active Substance: TICAGRELOR
     Indication: MYOCARDIAL INFARCTION
     Route: 048
     Dates: start: 201701
  3. NORVASC [Concomitant]
     Active Substance: AMLODIPINE BESYLATE
  4. SORTIS [Concomitant]
     Active Substance: ATORVASTATIN
  5. NOLIPREL [Concomitant]
  6. ASPENTER [Concomitant]
     Active Substance: ASPIRIN
  7. NEBILET [Concomitant]
     Active Substance: NEBIVOLOL

REACTIONS (2)
  - Myocardial infarction [Fatal]
  - Coronary artery stenosis [Unknown]
